FAERS Safety Report 10236341 (Version 1)
Quarter: 2014Q2

REPORT INFORMATION
  Report Type: Spontaneous
  Country: US (occurrence: US)
  Receive Date: 20140613
  Receipt Date: 20140613
  Transmission Date: 20141212
  Serious: No
  Sender: FDA-Public Use
  Company Number: US-GLAXOSMITHKLINE-A1040270A

PATIENT
  Age: 44 Year
  Sex: Female

DRUGS (2)
  1. TREXIMET [Suspect]
     Indication: MIGRAINE
     Route: 048
  2. IBUPROFEN [Suspect]
     Indication: PAIN
     Dosage: 800MG PER DAY

REACTIONS (3)
  - Nausea [Unknown]
  - Malaise [Unknown]
  - Drug interaction [Unknown]
